FAERS Safety Report 18385871 (Version 2)
Quarter: 2020Q4

REPORT INFORMATION
  Report Type: Report from Study
  Country: PL (occurrence: PL)
  Receive Date: 20201015
  Receipt Date: 20201106
  Transmission Date: 20210114
  Serious: Yes (Life-Threatening, Other)
  Sender: FDA-Public Use
  Company Number: PL-B.I. PHARMACEUTICALS,INC./RIDGEFIELD-2020-BI-054299

PATIENT
  Age: 83 Year
  Sex: Male
  Weight: 78 kg

DRUGS (1)
  1. PRADAXA [Suspect]
     Active Substance: DABIGATRAN ETEXILATE MESYLATE
     Indication: ATRIAL FIBRILLATION
     Dosage: LAST DOSE AT 8AM.?AFTER THE PROCEDURE, PATIENT DISCHARGED 110 MG X 2.
     Route: 048

REACTIONS (2)
  - Cardiac tamponade [Recovered/Resolved]
  - Coronary artery perforation [Recovered/Resolved]

NARRATIVE: CASE EVENT DATE: 20190418
